FAERS Safety Report 7462100-1 (Version None)
Quarter: 2011Q2

REPORT INFORMATION
  Report Type: 
  Country: None (occurrence: None)
  Receive Date: 20110506
  Receipt Date: 20110321
  Transmission Date: 20111010
  Serious: Yes (Hospitalization, Other)
  Sender: FDA-Public Use
  Company Number: US-BAYER-2011-000425

PATIENT
  Age: 40 Year
  Sex: Female
  Weight: 69.841 kg

DRUGS (8)
  1. YAZ [Suspect]
     Indication: ACNE
     Route: 048
  2. ATENOLOL [Concomitant]
     Dosage: UNK
     Dates: start: 19890101
  3. DROSPIRENONE AND ETHINYL ESTRADIOL [Suspect]
     Indication: ACNE
     Dosage: UNK
     Route: 048
     Dates: start: 20050201, end: 20100301
  4. ANTIBIOTICS [Concomitant]
     Dosage: UNK UNK, PRN
  5. ACETAMINOPHEN [Concomitant]
  6. YASMIN [Suspect]
     Indication: ACNE
     Dosage: UNK
     Route: 048
     Dates: start: 20050201, end: 20100301
  7. HYDROCHLOROTHIAZIDE [Concomitant]
     Dosage: UNK
     Dates: start: 19890101
  8. AMLODIPINE BESYLATE [Concomitant]

REACTIONS (8)
  - CEREBRAL ARTERY OCCLUSION [None]
  - EMBOLIC STROKE [None]
  - STRESS [None]
  - THALAMIC INFARCTION [None]
  - ARRHYTHMIA [None]
  - INJURY [None]
  - CEREBROVASCULAR ACCIDENT [None]
  - PAIN [None]
